FAERS Safety Report 11323005 (Version 1)
Quarter: 2015Q3

REPORT INFORMATION
  Report Type: Spontaneous
  Country: US (occurrence: None)
  Receive Date: 20150729
  Receipt Date: 20150729
  Transmission Date: 20151125
  Serious: No
  Sender: FDA-Public Use
  Company Number: None

PATIENT
  Sex: Male

DRUGS (5)
  1. FENTANYL. [Concomitant]
     Active Substance: FENTANYL
  2. IPRATROPIUM [Concomitant]
     Active Substance: IPRATROPIUM
  3. ZYTIGA [Suspect]
     Active Substance: ABIRATERONE ACETATE
     Indication: PROSTATE CANCER
     Route: 048
     Dates: start: 20150717
  4. DEXAMETHASON [Concomitant]
     Active Substance: DEXAMETHASONE
  5. AMOX/K CLAV [Concomitant]

REACTIONS (2)
  - Dyspnoea [None]
  - Local swelling [None]
